FAERS Safety Report 10674366 (Version 1)
Quarter: 2014Q4

REPORT INFORMATION
  Report Type: Spontaneous
  Country: US (occurrence: None)
  Receive Date: 20141209
  Receipt Date: 20141209
  Transmission Date: 20150529
  Serious: Yes (Other)
  Sender: FDA-Public Use
  Company Number: 402212

PATIENT
  Age: 67 Year
  Sex: Female
  Weight: 73.5 kg

DRUGS (3)
  1. NOVOLOG [Suspect]
     Active Substance: INSULIN ASPART
     Indication: TYPE 1 DIABETES MELLITUS
     Dosage: BASED ON CARBOHYDRATE COUNT, SUBCUTANEOUS
     Route: 058
     Dates: start: 2004
  2. ANTIHYPERTENSIVE [Concomitant]
     Active Substance: UNSPECIFIED INGREDIENT
  3. LANTUS [Suspect]
     Active Substance: INSULIN GLARGINE
     Indication: TYPE 1 DIABETES MELLITUS
     Dosage: 10 UNITS DAILY AT NIGHT SUBCUTANEOUS
     Route: 058

REACTIONS (2)
  - Wrong drug administered [None]
  - Blood glucose decreased [None]

NARRATIVE: CASE EVENT DATE: 2011
